FAERS Safety Report 23852029 (Version 2)
Quarter: 2025Q1

REPORT INFORMATION
  Report Type: Report from Study
  Country: CA (occurrence: CA)
  Receive Date: 20240514
  Receipt Date: 20250304
  Transmission Date: 20250409
  Serious: Yes (Hospitalization)
  Sender: CELLTRION
  Company Number: CA-CELLTRION INC.-2024CA010751

PATIENT

DRUGS (14)
  1. YUFLYMA [Suspect]
     Active Substance: ADALIMUMAB-AATY
     Indication: Crohn^s disease
     Dosage: 40 MILLIGRAM, Q2WEEKS
     Route: 058
     Dates: start: 20240213
  2. YUFLYMA [Suspect]
     Active Substance: ADALIMUMAB-AATY
     Route: 058
     Dates: start: 20240211
  3. YUFLYMA [Suspect]
     Active Substance: ADALIMUMAB-AATY
     Route: 058
     Dates: start: 20240225
  4. YUFLYMA [Suspect]
     Active Substance: ADALIMUMAB-AATY
     Route: 058
     Dates: start: 20240310
  5. PREDNISONE [Concomitant]
     Active Substance: PREDNISONE
  6. ASPIRIN [Concomitant]
     Active Substance: ASPIRIN
  7. CRESTOR [Concomitant]
     Active Substance: ROSUVASTATIN CALCIUM
  8. BRILINTA [Concomitant]
     Active Substance: TICAGRELOR
  9. VITAMIN D NOS [Concomitant]
     Active Substance: CHOLECALCIFEROL\ERGOCALCIFEROL
  10. PANTOPRAZOLE MAGNESIUM [Concomitant]
     Active Substance: PANTOPRAZOLE MAGNESIUM
  11. VITAMIN B12 [Concomitant]
     Active Substance: CYANOCOBALAMIN
  12. ASPIRIN [Concomitant]
     Active Substance: ASPIRIN
  13. CYANOCOBALAMIN [Concomitant]
     Active Substance: CYANOCOBALAMIN
  14. ROSUVASTATIN CALCIUM [Concomitant]
     Active Substance: ROSUVASTATIN CALCIUM

REACTIONS (2)
  - Abdominal discomfort [Not Recovered/Not Resolved]
  - Chronic obstructive pulmonary disease [Not Recovered/Not Resolved]
